FAERS Safety Report 25728065 (Version 1)
Quarter: 2025Q3

REPORT INFORMATION
  Report Type: Spontaneous
  Country: US (occurrence: None)
  Receive Date: 20250825
  Receipt Date: 20250825
  Transmission Date: 20251020
  Serious: Yes (Hospitalization)
  Sender: FDA-CTU
  Company Number: None

PATIENT
  Sex: Female

DRUGS (5)
  1. CEFTRIAXONE [Suspect]
     Active Substance: CEFTRIAXONE
  2. PROCHLORPERAZINE [Suspect]
     Active Substance: PROCHLORPERAZINE
  3. DILAUDID [Suspect]
     Active Substance: HYDROMORPHONE HYDROCHLORIDE
  4. SODIUM CHLORIDE [Suspect]
     Active Substance: SODIUM CHLORIDE
  5. DIPHENHYDRAMINE [Concomitant]
     Active Substance: DIPHENHYDRAMINE

REACTIONS (9)
  - Anaphylactic reaction [None]
  - Dyspnoea [None]
  - Wheezing [None]
  - Seizure [None]
  - Posturing [None]
  - Respiratory arrest [None]
  - Unresponsive to stimuli [None]
  - Bradycardia [None]
  - Pulse absent [None]

NARRATIVE: CASE EVENT DATE: 20230329
